FAERS Safety Report 8232005-7 (Version None)
Quarter: 2012Q1

REPORT INFORMATION
  Report Type: 
  Country: None (occurrence: None)
  Receive Date: 20120323
  Receipt Date: 20120319
  Transmission Date: 20120608
  Serious: Yes (Death)
  Sender: FDA-Public Use
  Company Number: US-JNJFOC-20120308206

PATIENT

DRUGS (12)
  1. RISPERIDONE [Suspect]
     Indication: DEMENTIA
     Route: 065
  2. ARIPIPRAZOLE [Suspect]
     Indication: DEMENTIA
     Route: 065
  3. OLANZAPINE [Suspect]
     Indication: GENERALISED ANXIETY DISORDER
     Route: 065
  4. QUETIAPINE [Suspect]
     Indication: DEMENTIA
     Route: 065
  5. QUETIAPINE [Suspect]
     Indication: GENERALISED ANXIETY DISORDER
     Route: 065
  6. OLANZAPINE [Suspect]
     Indication: DEMENTIA
     Route: 065
  7. RISPERIDONE [Suspect]
     Indication: OBSESSIVE-COMPULSIVE DISORDER
     Route: 065
  8. ARIPIPRAZOLE [Suspect]
     Indication: GENERALISED ANXIETY DISORDER
     Route: 065
  9. OLANZAPINE [Suspect]
     Indication: OBSESSIVE-COMPULSIVE DISORDER
     Route: 065
  10. QUETIAPINE [Suspect]
     Indication: OBSESSIVE-COMPULSIVE DISORDER
     Route: 065
  11. RISPERIDONE [Suspect]
     Indication: GENERALISED ANXIETY DISORDER
     Route: 065
  12. ARIPIPRAZOLE [Suspect]
     Indication: OBSESSIVE-COMPULSIVE DISORDER
     Route: 065

REACTIONS (11)
  - CARDIOVASCULAR DISORDER [None]
  - AKATHISIA [None]
  - URINARY TRACT INFECTION [None]
  - CEREBROVASCULAR ACCIDENT [None]
  - INCREASED APPETITE [None]
  - DEATH [None]
  - FATIGUE [None]
  - OFF LABEL USE [None]
  - SEDATION [None]
  - EXTRAPYRAMIDAL DISORDER [None]
  - WEIGHT INCREASED [None]
